FAERS Safety Report 9754530 (Version 2)
Quarter: 2013Q4

REPORT INFORMATION
  Report Type: Spontaneous
  Country: CA (occurrence: CA)
  Receive Date: 20131213
  Receipt Date: 20131213
  Transmission Date: 20140711
  Serious: Yes (Hospitalization, Other)
  Sender: FDA-Public Use
  Company Number: CA-009507513-1310CAN006706

PATIENT
  Age: 91 Year
  Sex: Female
  Weight: 37 kg

DRUGS (7)
  1. INVANZ [Suspect]
     Indication: OSTEITIS
     Dosage: 1 G, Q24H
     Route: 042
     Dates: start: 20130905, end: 20130912
  2. LYRICA [Concomitant]
     Route: 065
  3. CELEXA [Concomitant]
     Route: 065
  4. CALCIUM (UNSPECIFIED) (+) VITAMIN D (UNSPECIFIED) [Concomitant]
     Route: 065
  5. SERAX [Concomitant]
     Route: 065
  6. CYANOCOBALAMIN [Concomitant]
     Route: 065
  7. ACTONEL [Concomitant]
     Route: 065

REACTIONS (4)
  - Delirium [Recovering/Resolving]
  - Convulsion [Recovering/Resolving]
  - Immobile [Unknown]
  - Confusional state [Unknown]
